FAERS Safety Report 18991589 (Version 1)
Quarter: 2021Q1

REPORT INFORMATION
  Report Type: Spontaneous
  Country: US (occurrence: US)
  Receive Date: 20210309
  Receipt Date: 20210309
  Transmission Date: 20210420
  Serious: Yes (Hospitalization)
  Sender: FDA-Public Use
  Company Number: None

PATIENT
  Age: 81 Year
  Sex: Male

DRUGS (2)
  1. MIRTAZAPINE (MIRTAZAPINE 15MG TAB) [Suspect]
     Active Substance: MIRTAZAPINE
     Indication: INSOMNIA
  2. MIRTAZAPINE (MIRTAZAPINE 15MG TAB) [Suspect]
     Active Substance: MIRTAZAPINE
     Indication: DEPRESSION
     Dosage: ?          OTHER DOSE:7.5 TO 15 MG;?
     Route: 048

REACTIONS (2)
  - Intentional self-injury [None]
  - Intentional overdose [None]

NARRATIVE: CASE EVENT DATE: 20210301
